FAERS Safety Report 26070645 (Version 3)
Quarter: 2025Q4

REPORT INFORMATION
  Report Type: Spontaneous
  Country: US (occurrence: US)
  Receive Date: 20251120
  Receipt Date: 20251212
  Transmission Date: 20260117
  Serious: Yes (Other)
  Sender: SANOFI AVENTIS
  Company Number: US-SA-2025SA313411

PATIENT
  Age: 82 Year
  Sex: Male

DRUGS (1)
  1. DUPIXENT [Suspect]
     Active Substance: DUPILUMAB
     Indication: Pemphigoid
     Dosage: 300 MG, QOW
     Dates: start: 202509

REACTIONS (2)
  - Cardiac failure congestive [Unknown]
  - Dry eye [Unknown]

NARRATIVE: CASE EVENT DATE: 20250101
